FAERS Safety Report 21824125 (Version 1)
Quarter: 2023Q1

REPORT INFORMATION
  Report Type: Report from Study
  Country: CA (occurrence: CA)
  Receive Date: 20230105
  Receipt Date: 20230105
  Transmission Date: 20230418
  Serious: Yes (Other)
  Sender: FDA-Public Use
  Company Number: CA-002147023-NVSC2022CA302853

PATIENT
  Age: 40 Year
  Sex: Female

DRUGS (1)
  1. HYRIMOZ [Suspect]
     Active Substance: ADALIMUMAB-ADAZ
     Indication: Crohn^s disease
     Dosage: 40 MG
     Route: 058
     Dates: start: 20220122

REACTIONS (6)
  - Uveitis [Unknown]
  - Vision blurred [Unknown]
  - Arthralgia [Unknown]
  - Quality of life decreased [Unknown]
  - Faeces soft [Unknown]
  - Abdominal pain [Unknown]
